FAERS Safety Report 6821623-6 (Version None)
Quarter: 2010Q3

REPORT INFORMATION
  Report Type: 
  Country: None (occurrence: None)
  Receive Date: 20100707
  Receipt Date: 20090505
  Transmission Date: 20110219
  Serious: No
  Sender: FDA-Public Use
  Company Number: US-PFIZER INC-2009187692

PATIENT
  Sex: Male

DRUGS (2)
  1. ZOLOFT [Suspect]
  2. DRUG, UNSPECIFIED [Concomitant]

REACTIONS (2)
  - BLOOD POTASSIUM DECREASED [None]
  - CHEST PAIN [None]
